FAERS Safety Report 22375927 (Version 1)
Quarter: 2023Q2

REPORT INFORMATION
  Report Type: Spontaneous
  Country: US (occurrence: US)
  Receive Date: 20230527
  Receipt Date: 20230527
  Transmission Date: 20230722
  Serious: No
  Sender: FDA-Public Use
  Company Number: US-PERRIGO-22US013739

PATIENT
  Age: 56 Year
  Sex: Male
  Weight: 104.31 kg

DRUGS (3)
  1. MINOXIDIL [Suspect]
     Active Substance: MINOXIDIL
     Indication: Hair disorder
     Dosage: 1/2 CAPFUL, ONCE IN THE MORNING
     Route: 061
  2. LEVOTHYROXINE [Concomitant]
     Active Substance: LEVOTHYROXINE
     Indication: Hypothyroidism
     Dosage: UNKNOWN, UNKNOWN
     Route: 065
     Dates: start: 2000
  3. HUMIRA [Concomitant]
     Active Substance: ADALIMUMAB
     Indication: Psoriatic arthropathy
     Dosage: UNKNOWN, UNKNOWN
     Route: 065
     Dates: start: 2001

REACTIONS (5)
  - Application site dermatitis [Recovering/Resolving]
  - Application site exfoliation [Recovering/Resolving]
  - Application site haemorrhage [Recovering/Resolving]
  - Inappropriate schedule of product administration [Unknown]
  - Off label use [Unknown]

NARRATIVE: CASE EVENT DATE: 20220901
